FAERS Safety Report 15826587 (Version 1)
Quarter: 2019Q1

REPORT INFORMATION
  Report Type: Spontaneous
  Country: US (occurrence: US)
  Receive Date: 20190115
  Receipt Date: 20190115
  Transmission Date: 20190417
  Serious: No
  Sender: FDA-Public Use
  Company Number: US-NEOS THERAPEUTICS, LP-2018NEO00113

PATIENT
  Age: 13 Year
  Sex: Male

DRUGS (3)
  1. COTEMPLA XR-ODT [Suspect]
     Active Substance: METHYLPHENIDATE
     Indication: ATTENTION DEFICIT/HYPERACTIVITY DISORDER
     Dosage: 8.6 MG, 1X/DAY
     Route: 048
     Dates: start: 20180918, end: 20181001
  2. COTEMPLA XR-ODT [Suspect]
     Active Substance: METHYLPHENIDATE
     Dosage: 8.6 MG, 1X/DAY
     Route: 048
     Dates: start: 20181002, end: 20181003
  3. OMEGA-3 FATTY ACIDS [Concomitant]
     Active Substance: OMEGA-3 FATTY ACIDS
     Dosage: 500 MG, 1X/DAY

REACTIONS (2)
  - Rash generalised [Recovered/Resolved]
  - Pruritus [Recovered/Resolved]

NARRATIVE: CASE EVENT DATE: 2018
